FAERS Safety Report 24777752 (Version 1)
Quarter: 2024Q4

REPORT INFORMATION
  Report Type: Spontaneous
  Country: US (occurrence: US)
  Receive Date: 20241226
  Receipt Date: 20241226
  Transmission Date: 20250115
  Serious: No
  Sender: TEVA
  Company Number: US-TEVA-VS-3273977

PATIENT
  Age: 42 Year
  Sex: Female

DRUGS (2)
  1. AUSTEDO XR [Suspect]
     Active Substance: DEUTETRABENAZINE
     Indication: Tardive dyskinesia
     Dosage: STARTED ABOUT 4-5 MONTHS AGO
     Route: 065
     Dates: start: 2024, end: 2024
  2. AUSTEDO XR [Suspect]
     Active Substance: DEUTETRABENAZINE
     Indication: Tardive dyskinesia
     Dosage: 4-WEEK PATIENT TITRATION KIT, 6,12,24MG
     Route: 048
     Dates: start: 2024

REACTIONS (3)
  - Pain [Unknown]
  - Product use issue [Unknown]
  - Insomnia [Unknown]

NARRATIVE: CASE EVENT DATE: 20240101
